FAERS Safety Report 4550361-8 (Version None)
Quarter: 2004Q4

REPORT INFORMATION
  Report Type: 
  Country: None (occurrence: None)
  Receive Date: 20041227
  Receipt Date: 20040927
  Transmission Date: 20050328
  Serious: No
  Sender: FDA-Public Use
  Company Number: US093161

PATIENT
  Age: 90 Year
  Sex: Male

DRUGS (4)
  1. ARANESP [Suspect]
     Indication: MYELODYSPLASTIC SYNDROME
     Dosage: 100 MCG, 1 IN 2 WEEKS, SC
     Route: 058
     Dates: start: 20030512
  2. CYANOCOBALAMIN [Concomitant]
  3. ATENOLOL [Concomitant]
  4. FINASTERIDE [Concomitant]

REACTIONS (1)
  - TRANSIENT ISCHAEMIC ATTACK [None]
